FAERS Safety Report 6705070-3 (Version None)
Quarter: 2010Q2

REPORT INFORMATION
  Report Type: 
  Country: None (occurrence: None)
  Receive Date: 20100430
  Receipt Date: 20100429
  Transmission Date: 20101027
  Serious: Yes (Other)
  Sender: FDA-Public Use
  Company Number: D0067470A

PATIENT
  Sex: Male

DRUGS (1)
  1. NARAMIG [Suspect]
     Route: 048

REACTIONS (2)
  - COLITIS ISCHAEMIC [None]
  - LARGE INTESTINE PERFORATION [None]
